FAERS Safety Report 18464188 (Version 1)
Quarter: 2020Q4

REPORT INFORMATION
  Report Type: Report from Study
  Country: ZA (occurrence: ZA)
  Receive Date: 20201104
  Receipt Date: 20201104
  Transmission Date: 20210114
  Serious: Yes (Other)
  Sender: FDA-Public Use
  Company Number: NVSC2020ZA287960

PATIENT
  Sex: Male

DRUGS (1)
  1. METFORMIN [Suspect]
     Active Substance: METFORMIN HYDROCHLORIDE
     Indication: CARDIAC FAILURE
     Dosage: 1500 MG/KG, QD
     Route: 048

REACTIONS (7)
  - Orthopnoea [Unknown]
  - Product use in unapproved indication [Unknown]
  - Fatigue [Unknown]
  - Cardiac failure chronic [Unknown]
  - Ejection fraction decreased [Unknown]
  - Dyspnoea [Unknown]
  - Blood pressure increased [Unknown]
